FAERS Safety Report 8181897-9 (Version None)
Quarter: 2012Q1

REPORT INFORMATION
  Report Type: 
  Country: None (occurrence: None)
  Receive Date: 20120302
  Receipt Date: 20111223
  Transmission Date: 20120608
  Serious: Yes (Other)
  Sender: FDA-Public Use
  Company Number: US-ROCHE-792162

PATIENT
  Sex: Female
  Weight: 54.48 kg

DRUGS (6)
  1. ACCUTANE [Suspect]
     Indication: ACNE
     Route: 048
     Dates: start: 20020101, end: 20030101
  2. AZITHROMYCIN [Concomitant]
  3. NAPROXEN [Concomitant]
  4. AMNESTEEM [Suspect]
     Route: 048
     Dates: start: 20030316, end: 20030618
  5. AMNESTEEM [Suspect]
     Indication: ACNE
     Route: 048
     Dates: start: 20020101, end: 20030101
  6. ACCUTANE [Suspect]
     Dates: start: 20021101, end: 20021201

REACTIONS (4)
  - EMOTIONAL DISTRESS [None]
  - INFLAMMATORY BOWEL DISEASE [None]
  - GASTROOESOPHAGEAL REFLUX DISEASE [None]
  - COLITIS ULCERATIVE [None]
